FAERS Safety Report 9893494 (Version 2)
Quarter: 2014Q1

REPORT INFORMATION
  Report Type: Spontaneous
  Country: US (occurrence: US)
  Receive Date: 20140213
  Receipt Date: 20140227
  Transmission Date: 20141002
  Serious: Yes (Hospitalization, Other)
  Sender: FDA-Public Use
  Company Number: US-ABBVIE-14P-163-1198579-00

PATIENT
  Age: 48 Year
  Sex: Female
  Weight: 104.42 kg

DRUGS (1)
  1. LUPRON DEPOT [Suspect]
     Indication: UTERINE LEIOMYOMA
     Route: 030
     Dates: start: 2002, end: 2002

REACTIONS (9)
  - Ligament disorder [Unknown]
  - Uterine leiomyoma [Unknown]
  - Trigger finger [Not Recovered/Not Resolved]
  - Finger deformity [Not Recovered/Not Resolved]
  - Nerve compression [Not Recovered/Not Resolved]
  - Joint lock [Not Recovered/Not Resolved]
  - Musculoskeletal stiffness [Not Recovered/Not Resolved]
  - Fungal infection [Recovered/Resolved]
  - Ovarian cyst [Unknown]
